FAERS Safety Report 13997321 (Version 3)
Quarter: 2017Q4

REPORT INFORMATION
  Report Type: Report from Study
  Country: CN (occurrence: CN)
  Receive Date: 20170921
  Receipt Date: 20171103
  Transmission Date: 20180321
  Serious: Yes (Other)
  Sender: FDA-Public Use
  Company Number: CN-BAYER-2017-145994

PATIENT
  Age: 70 Year
  Sex: Female

DRUGS (4)
  1. STIVARGA [Suspect]
     Active Substance: REGORAFENIB
     Indication: HEPATIC NEOPLASM
     Dosage: 160 MG, QD
     Route: 048
     Dates: start: 20170722, end: 2017
  2. STIVARGA [Suspect]
     Active Substance: REGORAFENIB
     Indication: HEPATIC NEOPLASM
     Dosage: 120 MG, QD
     Route: 048
     Dates: start: 2017, end: 2017
  3. STIVARGA [Suspect]
     Active Substance: REGORAFENIB
     Indication: HEPATIC NEOPLASM
     Dosage: 80 MG, QD
     Route: 048
     Dates: start: 2017, end: 20171002
  4. STIVARGA [Suspect]
     Active Substance: REGORAFENIB
     Indication: HEPATIC NEOPLASM
     Dosage: 160 MG, QD
     Route: 048
     Dates: start: 2017, end: 2017

REACTIONS (44)
  - Gait inability [None]
  - Adhesion [None]
  - Skin haemorrhage [None]
  - Abdominal pain upper [Recovered/Resolved]
  - Headache [None]
  - Dry mouth [None]
  - Adverse drug reaction [None]
  - Poor quality sleep [None]
  - Anal haemorrhage [None]
  - Abdominal discomfort [None]
  - Dysgeusia [None]
  - Rash [None]
  - Erythema [None]
  - Insomnia [Not Recovered/Not Resolved]
  - Ageusia [None]
  - Headache [None]
  - Adverse reaction [None]
  - Cough [None]
  - Abdominal pain [None]
  - Blood pressure increased [Recovering/Resolving]
  - Palmar-plantar erythrodysaesthesia syndrome [None]
  - Anhidrosis [None]
  - Gastric disorder [None]
  - Asthma [None]
  - Alpha 1 foetoprotein abnormal [None]
  - Diarrhoea [None]
  - Hypertension [None]
  - Heart rate decreased [None]
  - Musculoskeletal pain [None]
  - Decreased appetite [None]
  - Hepatic neoplasm [None]
  - Pain in extremity [None]
  - Heart rate decreased [Recovering/Resolving]
  - Blister [None]
  - Hepatic pain [None]
  - Metastases to liver [None]
  - Initial insomnia [None]
  - Joint crepitation [None]
  - Skin reaction [None]
  - Anal fissure [None]
  - Dysstasia [None]
  - Skin exfoliation [None]
  - Mouth haemorrhage [None]
  - Drug ineffective [None]

NARRATIVE: CASE EVENT DATE: 201707
